FAERS Safety Report 6657119-4 (Version None)
Quarter: 2010Q1

REPORT INFORMATION
  Report Type: 
  Country: None (occurrence: None)
  Receive Date: 20100325
  Receipt Date: 20100311
  Transmission Date: 20100710
  Serious: Yes (Hospitalization)
  Sender: FDA-Public Use
  Company Number: EUS-2010-00201

PATIENT
  Age: 74 Year
  Sex: Male
  Weight: 95.8 kg

DRUGS (13)
  1. QUADRAMET [Suspect]
     Indication: PROSTATE CANCER METASTATIC
     Dosage: 1.0 MCI/KG, INTRAVENOUS
     Route: 042
     Dates: start: 20080827
  2. DOCETAXEL [Suspect]
     Indication: PROSTATE CANCER METASTATIC
     Dosage: 3.5714 MG/M2, 1 IN 3 WEEKS, INTRAVENOUS
     Route: 042
     Dates: start: 20080827
  3. ZOLEDRONIC ACID [Concomitant]
  4. LUPRON [Concomitant]
  5. DECADRON [Concomitant]
  6. PREDNISONE TAB [Concomitant]
  7. OXYCODONE HCL [Concomitant]
  8. MELOXICAM [Concomitant]
  9. IBUPROFEN [Concomitant]
  10. AMBIEN [Concomitant]
  11. COLACE (DOCUSATE SODIUM) [Concomitant]
  12. METAMUCIL (PLANTAGO OVATA) [Concomitant]
  13. CALCIUM (CALCIUM) [Concomitant]

REACTIONS (5)
  - ATELECTASIS [None]
  - CULTURE URINE POSITIVE [None]
  - DIARRHOEA [None]
  - PYREXIA [None]
  - WHITE BLOOD CELL COUNT DECREASED [None]
